FAERS Safety Report 7842806-2 (Version None)
Quarter: 2011Q4

REPORT INFORMATION
  Report Type: 
  Country: None (occurrence: None)
  Receive Date: 20111025
  Receipt Date: 20111012
  Transmission Date: 20120403
  Serious: Yes (Hospitalization, Other)
  Sender: FDA-Public Use
  Company Number: US-BAYER-2010-009020

PATIENT
  Sex: Female
  Weight: 60 kg

DRUGS (8)
  1. HEPARIN [Concomitant]
     Dosage: UNK
     Dates: start: 20071101
  2. PHENYLEPHRINE HCL [Concomitant]
     Dosage: UNK
     Dates: start: 20071101
  3. AZITHROMYCIN [Concomitant]
     Dosage: UNK
     Dates: start: 20071101
  4. IBUPROFEN [Concomitant]
     Indication: PAIN
     Dosage: UNK UNK, PRN
     Dates: start: 20000101, end: 20100101
  5. HC TUSS-NR [Concomitant]
     Dosage: UNK
     Dates: start: 20071123
  6. LASIX [Concomitant]
     Dosage: UNK
     Dates: start: 20071101
  7. LEVAQUIN [Concomitant]
     Dosage: UNK
     Dates: start: 20071101, end: 20071212
  8. YASMIN [Suspect]
     Indication: CONTRACEPTION
     Dosage: UNK
     Dates: start: 20040101, end: 20071101

REACTIONS (7)
  - SUBCLAVIAN VEIN THROMBOSIS [None]
  - THROMBOPHLEBITIS SEPTIC [None]
  - JUGULAR VEIN THROMBOSIS [None]
  - PAIN [None]
  - SHOCK [None]
  - INJURY [None]
  - HYPERTENSION [None]
